FAERS Safety Report 20018338 (Version 5)
Quarter: 2021Q4

REPORT INFORMATION
  Report Type: Report from Study
  Country: CA (occurrence: CA)
  Receive Date: 20211101
  Receipt Date: 20211215
  Transmission Date: 20220303
  Serious: Yes (Hospitalization)
  Sender: FDA-Public Use
  Company Number: CA-JNJFOC-20211049777

PATIENT
  Age: 45 Year
  Sex: Male
  Weight: 128 kg

DRUGS (1)
  1. REMICADE [Suspect]
     Active Substance: INFLIXIMAB
     Indication: Crohn^s disease
     Route: 042
     Dates: start: 20140120, end: 20210923

REACTIONS (4)
  - Liver disorder [Unknown]
  - Renal failure [Unknown]
  - Sepsis [Not Recovered/Not Resolved]
  - Pneumonia klebsiella [Unknown]

NARRATIVE: CASE EVENT DATE: 20211019
